FAERS Safety Report 11230332 (Version 1)
Quarter: 2015Q3

REPORT INFORMATION
  Report Type: Spontaneous
  Country: US (occurrence: US)
  Receive Date: 20150701
  Receipt Date: 20150701
  Transmission Date: 20151125
  Serious: Yes (Other)
  Sender: FDA-Public Use
  Company Number: US-ASTRAZENECA-2015SE62791

PATIENT
  Sex: Female

DRUGS (3)
  1. OXETROL [Concomitant]
     Indication: POLLAKIURIA
     Dosage: UNKNOWN
  2. SYMBICORT [Suspect]
     Active Substance: BUDESONIDE\FORMOTEROL FUMARATE DIHYDRATE
     Dosage: 160 UG; 80-4.5 TWO PUFFS; TWO TIMES A DAY
     Route: 055
     Dates: end: 2014
  3. SYMBICORT [Suspect]
     Active Substance: BUDESONIDE\FORMOTEROL FUMARATE DIHYDRATE
     Route: 055

REACTIONS (4)
  - Pain [Not Recovered/Not Resolved]
  - Upper limb fracture [Not Recovered/Not Resolved]
  - Intentional product misuse [Unknown]
  - Feeling abnormal [Not Recovered/Not Resolved]
